FAERS Safety Report 23320048 (Version 1)
Quarter: 2023Q4

REPORT INFORMATION
  Report Type: Spontaneous
  Country: US (occurrence: None)
  Receive Date: 20231219
  Receipt Date: 20231219
  Transmission Date: 20240110
  Serious: Yes (Other)
  Sender: FDA-Public Use
  Company Number: None

PATIENT
  Age: 78 Year
  Sex: Female

DRUGS (10)
  1. AMBRISENTAN [Suspect]
     Active Substance: AMBRISENTAN
     Indication: Pulmonary hypertension
     Dosage: FREQUENCY : DAILY;?
     Route: 048
     Dates: start: 20220701
  2. TADALAFIL [Concomitant]
  3. FUROSEMIDE [Concomitant]
     Active Substance: FUROSEMIDE
  4. ALBUTEROL HFA [Concomitant]
  5. TIMOLOL OPHT DROP [Concomitant]
  6. NETARSUDIL OPHT DROP [Concomitant]
  7. DORZOLAMIDE OPHT DROP [Concomitant]
  8. SPIRONOLACTONE [Concomitant]
  9. BRIMONIDINE OPHT DROP [Concomitant]
  10. LATANOPROST OPHT DROP [Concomitant]

REACTIONS (3)
  - Upper respiratory tract infection [None]
  - Drug ineffective [None]
  - Bronchitis [None]

NARRATIVE: CASE EVENT DATE: 20231126
